FAERS Safety Report 25351777 (Version 1)
Quarter: 2025Q2

REPORT INFORMATION
  Report Type: Spontaneous
  Country: US (occurrence: US)
  Receive Date: 20250523
  Receipt Date: 20250523
  Transmission Date: 20250716
  Serious: No
  Sender: HIKMA
  Company Number: US-HIKMA PHARMACEUTICALS USA INC.-US-H14001-24-08936

PATIENT
  Age: 77 Year
  Sex: Male

DRUGS (1)
  1. FLUTICASONE PROPIONATE [Suspect]
     Active Substance: FLUTICASONE PROPIONATE
     Indication: Ear disorder
     Dosage: 1 DOSAGE FORM, QD, AT BEDTIME
     Route: 045
     Dates: start: 202405

REACTIONS (3)
  - Platelet count decreased [Not Recovered/Not Resolved]
  - Haemorrhage [Unknown]
  - Off label use [Unknown]
